FAERS Safety Report 5110818-8 (Version None)
Quarter: 2006Q3

REPORT INFORMATION
  Report Type: 
  Country: None (occurrence: None)
  Receive Date: 20060919
  Receipt Date: 20060829
  Transmission Date: 20061208
  Serious: Yes (Hospitalization)
  Sender: FDA-Public Use
  Company Number: E3810-00209-SPO-BR

PATIENT
  Age: 47 Year
  Sex: Female
  Weight: 50 kg

DRUGS (8)
  1. RABEPRAZOLE SODIUM [Suspect]
     Indication: GASTRITIS
     Dosage: 10 MG, 1 IN 2 D, ORAL
     Route: 048
     Dates: start: 20060701
  2. RABEPRAZOLE SODIUM [Suspect]
     Indication: GASTROOESOPHAGEAL REFLUX DISEASE
     Dosage: 10 MG, 1 IN 2 D, ORAL
     Route: 048
     Dates: start: 20060701
  3. SANDIMMUNE [Concomitant]
  4. DIOVAN HCT (CO-DIOVAN) [Concomitant]
  5. CELLCEPT [Concomitant]
  6. METOPROLOL TARTRATE [Concomitant]
  7. ATENSINA (CLONIDINE HYDROCHLORIDE) [Concomitant]
  8. ALPRAZOLAM [Concomitant]

REACTIONS (2)
  - HYPERTENSION [None]
  - URINE COLOUR ABNORMAL [None]
